FAERS Safety Report 21370576 (Version 1)
Quarter: 2022Q3

REPORT INFORMATION
  Report Type: Spontaneous
  Country: US (occurrence: None)
  Receive Date: 20220922
  Receipt Date: 20220922
  Transmission Date: 20221027
  Serious: No
  Sender: FDA-Public Use
  Company Number: None

PATIENT
  Age: 49 Year
  Sex: Male

DRUGS (1)
  1. COSENTYX [Suspect]
     Active Substance: SECUKINUMAB
     Indication: Psoriasis
     Dosage: OTHER FREQUENCY : WEEK 3;?INJECT 300MG (2 PENS) SUBCUTANEOUSLY FOR WEEK 3 AS?DIRECTED.?
     Route: 058
     Dates: start: 202205

REACTIONS (1)
  - Cardiac disorder [None]
